FAERS Safety Report 7397722-X (Version None)
Quarter: 2011Q2

REPORT INFORMATION
  Report Type: 
  Country: None (occurrence: None)
  Receive Date: 20110406
  Receipt Date: 20110322
  Transmission Date: 20111010
  Serious: Yes (Hospitalization, Other)
  Sender: FDA-Public Use
  Company Number: JP-ASTRAZENECA-2011SE12892

PATIENT
  Age: 53 Year
  Sex: Male

DRUGS (24)
  1. HUMULIN R [Concomitant]
     Dates: start: 20110206
  2. NOREPINEPHRINE BITARTRATE [Concomitant]
     Dates: start: 20110207
  3. CONCENTRATED HUMAN PLATELETS [Concomitant]
     Dates: start: 20110207
  4. BIOFERMIN R [Concomitant]
     Route: 048
     Dates: start: 20110209
  5. FUNGIZONE [Concomitant]
     Route: 048
     Dates: start: 20110209
  6. FUNGUARD [Concomitant]
     Dates: start: 20110209
  7. RIKKUNSHI-TO [Concomitant]
     Route: 048
     Dates: start: 20110209
  8. MEROPEN [Suspect]
     Indication: FEBRILE NEUTROPENIA
     Route: 042
     Dates: start: 20110209, end: 20110209
  9. PENTAZOCINE LACTATE [Concomitant]
     Dates: start: 20110211, end: 20110211
  10. FRESH FROZEN HUMAN PLASMA [Concomitant]
     Dates: start: 20110207
  11. OMEPRAL [Concomitant]
     Route: 042
     Dates: start: 20110209
  12. KENKETSU VENOGLOBULIN-IH [Concomitant]
     Route: 042
     Dates: start: 20110207, end: 20110209
  13. DOPAMINE HYDROCHLORIDE [Concomitant]
     Dates: start: 20110207
  14. DIGOSIN [Concomitant]
     Route: 042
     Dates: start: 20110211
  15. MEROPEN [Suspect]
     Route: 042
     Dates: start: 20110210, end: 20110213
  16. MARZULENE [Concomitant]
     Route: 048
     Dates: start: 20110209
  17. DORMICUM [Concomitant]
     Dates: start: 20110205
  18. PROPOFOL [Concomitant]
     Dates: start: 20110205
  19. MEROPEN [Suspect]
     Route: 042
     Dates: start: 20110214, end: 20110214
  20. CONCENTRATED HUMAN RED BLOOD CELLS [Concomitant]
     Dates: start: 20110207
  21. SOL-MELCORT [Concomitant]
     Route: 042
     Dates: start: 20110209
  22. POLYMYXIN-B-SULFATE [Concomitant]
     Route: 048
     Dates: start: 20110209
  23. VERAPAMIL HCL [Concomitant]
     Dates: start: 20110210, end: 20110210
  24. BOSMIN [Concomitant]
     Dates: start: 20110214

REACTIONS (5)
  - RENAL IMPAIRMENT [None]
  - HEPATIC FUNCTION ABNORMAL [None]
  - PLATELET COUNT DECREASED [None]
  - ATRIAL FIBRILLATION [None]
  - ANAEMIA [None]
